FAERS Safety Report 4664111-8 (Version None)
Quarter: 2005Q2

REPORT INFORMATION
  Report Type: 
  Country: None (occurrence: None)
  Receive Date: 20050516
  Receipt Date: 20050516
  Transmission Date: 20051028
  Serious: Yes (Hospitalization)
  Sender: FDA-Public Use
  Company Number: None

PATIENT
  Age: 39 Year
  Sex: Female
  Weight: 93.3 kg

DRUGS (4)
  1. TRIPTORELIN [Suspect]
     Indication: OVARIAN DISORDER
     Dosage: 3.75 MG IM
     Dates: start: 20041228
  2. TRIPTORELIN [Suspect]
     Indication: OVARIAN DISORDER
     Dosage: 3.75 MG IM
     Dates: start: 20050127
  3. TRIPTORELIN [Suspect]
     Indication: OVARIAN DISORDER
     Dosage: 3.75 MG IM
     Dates: start: 20050224
  4. TRIPTORELIN [Suspect]
     Indication: OVARIAN DISORDER
     Dosage: 3.75 MG IM
     Dates: start: 20050324

REACTIONS (6)
  - CHEST PAIN [None]
  - COUGH [None]
  - DYSPNOEA [None]
  - OEDEMA PERIPHERAL [None]
  - PHARYNGOLARYNGEAL PAIN [None]
  - PYREXIA [None]
